FAERS Safety Report 21986270 (Version 1)
Quarter: 2023Q1

REPORT INFORMATION
  Report Type: Report from Study
  Country: CA (occurrence: CA)
  Receive Date: 20230213
  Receipt Date: 20230213
  Transmission Date: 20230418
  Serious: Yes (Other)
  Sender: FDA-Public Use
  Company Number: CA-AstraZeneca-2023A012012

PATIENT
  Sex: Female

DRUGS (1)
  1. ENHERTU [Suspect]
     Active Substance: FAM-TRASTUZUMAB DERUXTECAN-NXKI
     Indication: Breast cancer metastatic
     Dosage: 248 MG, ONCE EVERY 3 WK
     Route: 042
     Dates: start: 20211103

REACTIONS (4)
  - Toxicity to various agents [Unknown]
  - Malignant neoplasm progression [Unknown]
  - Drug intolerance [Unknown]
  - Off label use [Unknown]
